FAERS Safety Report 9591998 (Version 2)
Quarter: 2013Q4

REPORT INFORMATION
  Report Type: Spontaneous
  Country: US (occurrence: US)
  Receive Date: 20131004
  Receipt Date: 20131014
  Transmission Date: 20140711
  Serious: Yes (Death)
  Sender: FDA-Public Use
  Company Number: US-AMGEN-USASP2013068336

PATIENT
  Age: 87 Year
  Sex: Female
  Weight: 68.93 kg

DRUGS (7)
  1. PROLIA [Suspect]
     Indication: OSTEOPOROSIS POSTMENOPAUSAL
     Dosage: 60 MG, Q6MO
     Route: 058
     Dates: start: 20111007
  2. PROLIA [Suspect]
     Route: 058
  3. PROLIA [Suspect]
     Route: 058
  4. OS-CAL + D [Concomitant]
     Indication: OSTEOPOROSIS
     Dosage: 500/400 MG, BID
     Route: 048
  5. BUMETANIDE [Concomitant]
     Dosage: 1 MG, QD
     Route: 048
  6. NAMENDA [Concomitant]
     Dosage: 10 MG, BID
     Route: 048
  7. QUETIAPINE                         /01270902/ [Concomitant]
     Dosage: 25 MG, QD
     Route: 048

REACTIONS (1)
  - Dementia Alzheimer^s type [Fatal]
